FAERS Safety Report 7732981-2 (Version None)
Quarter: 2011Q3

REPORT INFORMATION
  Report Type: 
  Country: None (occurrence: None)
  Receive Date: 20110907
  Receipt Date: 20110831
  Transmission Date: 20111222
  Serious: Yes (Other)
  Sender: FDA-Public Use
  Company Number: PHHY2010CA65639

PATIENT
  Sex: Female

DRUGS (3)
  1. ZOLEDRONOC ACID [Suspect]
     Indication: OSTEOPOROSIS
     Dosage: 5 MG,
     Dates: start: 20081028
  2. ZOLEDRONOC ACID [Suspect]
     Dates: start: 20091028
  3. TYLENOL-500 [Concomitant]
     Indication: PREMEDICATION
     Dosage: 2 DF, UNK

REACTIONS (14)
  - FALL [None]
  - MEDICATION ERROR [None]
  - RHEUMATOID ARTHRITIS [None]
  - ABDOMINAL PAIN UPPER [None]
  - FATIGUE [None]
  - ARTHRALGIA [None]
  - SPINAL FRACTURE [None]
  - FAECAL VOLUME INCREASED [None]
  - HEADACHE [None]
  - PRURITUS [None]
  - MUSCULOSKELETAL CHEST PAIN [None]
  - INSOMNIA [None]
  - ASTHENIA [None]
  - PAIN IN EXTREMITY [None]
